FAERS Safety Report 25787170 (Version 2)
Quarter: 2025Q4

REPORT INFORMATION
  Report Type: Spontaneous
  Country: JP (occurrence: JP)
  Receive Date: 20250910
  Receipt Date: 20251016
  Transmission Date: 20260117
  Serious: Yes (Other)
  Sender: OTSUKA
  Company Number: JP-MMM-Otsuka-PNABS4WI

PATIENT
  Age: 8 Decade
  Sex: Male

DRUGS (2)
  1. REXULTI [Suspect]
     Active Substance: BREXPIPRAZOLE
     Indication: Dementia Alzheimer^s type
     Dosage: 1 MG/DAY
     Dates: start: 20250704, end: 20250825
  2. REXULTI [Suspect]
     Active Substance: BREXPIPRAZOLE
     Dosage: 0.5 MG/DAY
     Dates: start: 20250625

REACTIONS (3)
  - Dementia [Recovered/Resolved]
  - Hallucination [Recovered/Resolved]
  - Oesophageal carcinoma recurrent [Unknown]

NARRATIVE: CASE EVENT DATE: 20250801
